FAERS Safety Report 7250827-6 (Version None)
Quarter: 2011Q1

REPORT INFORMATION
  Report Type: 
  Country: None (occurrence: None)
  Receive Date: 20110128
  Receipt Date: 20110120
  Transmission Date: 20110831
  Serious: Yes (Hospitalization)
  Sender: FDA-Public Use
  Company Number: JP-MPIJNJ-2011-00297

PATIENT

DRUGS (2)
  1. VELCADE [Suspect]
     Indication: MULTIPLE MYELOMA
     Dosage: 2.1 MG, CYCLIC
     Route: 042
     Dates: start: 20070412, end: 20080922
  2. DECADRON [Concomitant]
     Indication: MULTIPLE MYELOMA
     Dosage: 40 MG, UNK
     Route: 042
     Dates: start: 20070413, end: 20070511

REACTIONS (1)
  - CELLULITIS [None]
